FAERS Safety Report 18783334 (Version 2)
Quarter: 2021Q4

REPORT INFORMATION
  Report Type: Report from Study
  Country: US (occurrence: US)
  Receive Date: 20210125
  Receipt Date: 20211001
  Transmission Date: 20220304
  Serious: Yes (Death, Life-Threatening, Hospitalization, Disabling, Other)
  Sender: FDA-Public Use
  Company Number: US-PFIZER INC-2021058261

PATIENT
  Age: 57 Year
  Sex: Female
  Weight: 122 kg

DRUGS (39)
  1. CYTARABINE [Suspect]
     Active Substance: CYTARABINE
     Indication: Acute myeloid leukaemia
     Dosage: 240 MG, 1X/DAY
     Route: 042
     Dates: start: 20171117, end: 20171123
  2. IDARUBICIN HYDROCHLORIDE [Suspect]
     Active Substance: IDARUBICIN HYDROCHLORIDE
     Indication: Acute myeloid leukaemia
     Dosage: 29 MG, 1X/DAY
     Route: 042
     Dates: start: 20171117, end: 20171119
  3. GILTERITINIB [Suspect]
     Active Substance: GILTERITINIB
     Indication: Acute myeloid leukaemia
     Dosage: 200 MG, 1X/DAY, TABLET
     Route: 048
     Dates: start: 20171120, end: 20171203
  4. ZOVIRAX [Concomitant]
     Active Substance: ACYCLOVIR
     Dosage: 300 MG
     Dates: start: 20171119, end: 20180104
  5. NYSTATIN [Concomitant]
     Active Substance: NYSTATIN
  6. AVELOX [Concomitant]
     Active Substance: MOXIFLOXACIN HYDROCHLORIDE
     Dosage: 400 MG
     Dates: start: 20171118, end: 20171122
  7. VANCOMYCIN [Concomitant]
     Active Substance: VANCOMYCIN
     Dosage: UNK
     Dates: start: 20171114, end: 20171224
  8. COLACE [Concomitant]
     Active Substance: DOCUSATE SODIUM
     Dosage: UNK
     Dates: start: 20171112, end: 20171127
  9. ZOFRAN [Concomitant]
     Active Substance: ONDANSETRON HYDROCHLORIDE
  10. COMPAZINE [Concomitant]
     Active Substance: PROCHLORPERAZINE MALEATE
  11. ATIVAN [Concomitant]
     Active Substance: LORAZEPAM
     Dosage: 1 MG
     Dates: start: 20171117, end: 20180104
  12. TYLENOL [Concomitant]
     Active Substance: ACETAMINOPHEN
     Dosage: 650 MG
     Dates: start: 20171114, end: 20171127
  13. LASIX [Concomitant]
     Active Substance: FUROSEMIDE
     Dosage: 20 MG
     Dates: start: 20171118, end: 20180104
  14. NORVASC [Concomitant]
     Active Substance: AMLODIPINE BESYLATE
     Dosage: UNK
     Dates: start: 20171113, end: 20171209
  15. LANTUS [Concomitant]
     Active Substance: INSULIN GLARGINE
  16. SUBLIMAZE [Concomitant]
     Active Substance: FENTANYL CITRATE
     Dosage: UNK
     Dates: start: 20171114
  17. VERSED [Concomitant]
     Active Substance: MIDAZOLAM HYDROCHLORIDE
     Dosage: UNK
     Dates: start: 20171114
  18. SENOKOT [Concomitant]
     Active Substance: SENNOSIDES
     Dosage: UNK
     Dates: start: 20171112, end: 20180104
  19. SODIUM CHLORIDE [Concomitant]
     Active Substance: SODIUM CHLORIDE
     Dosage: 0.9 %, INFUSION
     Dates: start: 20171112, end: 20180104
  20. ZYLOPRIM [Concomitant]
     Active Substance: ALLOPURINOL
     Dosage: 300 MG
     Dates: start: 20171112, end: 20171124
  21. HYDREA [Concomitant]
     Active Substance: HYDROXYUREA
     Dosage: 1000 MG
     Dates: start: 20171112, end: 20171117
  22. ELAVIL [Concomitant]
     Active Substance: AMITRIPTYLINE HYDROCHLORIDE
     Dosage: 10 MG
     Dates: start: 20171113, end: 20171113
  23. POTASSIUM CHLORIDE [Concomitant]
     Active Substance: POTASSIUM CHLORIDE
     Dosage: UNK
     Dates: start: 20171113, end: 20171207
  24. XYLOCAINE [Concomitant]
     Active Substance: LIDOCAINE HYDROCHLORIDE
     Dosage: 5 ML
     Dates: start: 20171113, end: 20171113
  25. ELITEK [Concomitant]
     Active Substance: RASBURICASE
  26. LIDOCAINE [Concomitant]
     Active Substance: LIDOCAINE
     Dosage: UNK
     Dates: start: 20171113, end: 20180104
  27. NEOSYNEPHRINE [Concomitant]
     Active Substance: PHENYLEPHRINE HYDROCHLORIDE
     Dosage: UNK
     Dates: start: 20171113, end: 20171113
  28. PHENOL [Concomitant]
     Active Substance: PHENOL
     Dosage: UNK
     Dates: start: 20171113, end: 20180104
  29. CIPRO [Concomitant]
     Active Substance: CIPROFLOXACIN HYDROCHLORIDE
     Dosage: 500 MG
     Dates: start: 20171114, end: 20171122
  30. POTASSIUM BICARBONATE [Concomitant]
     Active Substance: POTASSIUM BICARBONATE
     Dosage: 25 MEQ
     Dates: start: 20171114, end: 20171126
  31. MAGNESIUM SULFATE [Concomitant]
     Active Substance: MAGNESIUM SULFATE
     Dosage: UNK
     Dates: start: 20171115, end: 20171207
  32. K-DUR [Concomitant]
     Active Substance: POTASSIUM CHLORIDE
     Dosage: UNK
     Dates: start: 20171115, end: 20171118
  33. HUMALOG [Concomitant]
     Active Substance: INSULIN LISPRO
     Dosage: UNK
     Dates: start: 20171116, end: 20171209
  34. DEXTROSE [Concomitant]
     Active Substance: DEXTROSE
     Dosage: 4 G
     Dates: start: 20171115, end: 20171208
  35. DEXTROSE [Concomitant]
     Active Substance: DEXTROSE
     Dosage: UNK
     Dates: start: 20171115, end: 20171208
  36. MELATONIN [Concomitant]
     Active Substance: MELATONIN
     Dosage: 3 MG
     Dates: start: 20171116, end: 20171217
  37. EMEND (FOSAPREPITANT DIMEGLUMINE) [Concomitant]
     Active Substance: FOSAPREPITANT DIMEGLUMINE
     Dosage: 150 MG
     Dates: start: 20171117, end: 20171120
  38. RENVELA [Concomitant]
     Active Substance: SEVELAMER CARBONATE
     Dosage: 800 MG
     Dates: start: 20171119, end: 20171125
  39. DIFLUCAN [Concomitant]
     Active Substance: FLUCONAZOLE
     Dosage: 150 MG
     Dates: start: 20171120, end: 20171214

REACTIONS (5)
  - Neutropenic colitis [Fatal]
  - Respiratory failure [Not Recovered/Not Resolved]
  - Fungaemia [Recovered/Resolved]
  - Febrile neutropenia [Recovered/Resolved]
  - Acute kidney injury [Recovered/Resolved]

NARRATIVE: CASE EVENT DATE: 20171117
